FAERS Safety Report 7473938-9 (Version None)
Quarter: 2011Q2

REPORT INFORMATION
  Report Type: 
  Country: None (occurrence: None)
  Receive Date: 20110511
  Receipt Date: 20100215
  Transmission Date: 20111010
  Serious: Yes (Hospitalization)
  Sender: FDA-Public Use
  Company Number: DE-GENENTECH-318276

PATIENT
  Age: 88 Year
  Sex: Female

DRUGS (3)
  1. LUCENTIS [Suspect]
     Indication: AGE-RELATED MACULAR DEGENERATION
     Dosage: UNK
     Route: 031
     Dates: start: 20090812
  2. UNKNOWN MEDICATION [Concomitant]
     Indication: CARDIAC DISORDER
     Dosage: UNK
  3. ASPIRIN [Concomitant]
     Indication: CARDIAC DISORDER
     Dosage: UNK

REACTIONS (5)
  - VISUAL ACUITY REDUCED [None]
  - ASTHENIA [None]
  - MYOCARDIAL INFARCTION [None]
  - CARDIAC DISORDER [None]
  - PULMONARY OEDEMA [None]
